FAERS Safety Report 5897767-2 (Version None)
Quarter: 2008Q3

REPORT INFORMATION
  Report Type: 
  Country: None (occurrence: None)
  Receive Date: 20080925
  Receipt Date: 20080918
  Transmission Date: 20090109
  Serious: Yes (Hospitalization, Disabling)
  Sender: FDA-Public Use
  Company Number: PHHY2008GT21964

PATIENT
  Age: 61 Year
  Sex: Male

DRUGS (5)
  1. TEGRETOL [Suspect]
     Indication: EPILEPSY
     Dosage: 400 MG, BID
  2. PHENOBARBITAL TAB [Concomitant]
     Dosage: 100 MG, BID
     Route: 048
  3. TOPIRAMATE [Concomitant]
     Dosage: 25 MG/DAY
     Route: 048
  4. TRITACE [Concomitant]
     Dosage: 5 MG/DAY
     Route: 048
  5. IRBESARTAN [Concomitant]
     Dosage: 150 MG/DAY
     Route: 048

REACTIONS (2)
  - DYSLIPIDAEMIA [None]
  - HEMIPLEGIA [None]
